FAERS Safety Report 6980364-5 (Version None)
Quarter: 2010Q3

REPORT INFORMATION
  Report Type: 
  Country: None (occurrence: None)
  Receive Date: 20100914
  Receipt Date: 20100903
  Transmission Date: 20110219
  Serious: Yes (Hospitalization)
  Sender: FDA-Public Use
  Company Number: GB-BAYER-201030166GPV

PATIENT
  Age: 72 Year
  Sex: Male
  Weight: 65 kg

DRUGS (26)
  1. SORAFENIB [Suspect]
     Indication: HEPATIC NEOPLASM MALIGNANT
     Dosage: TOTAL DAILY DOSE: 800 MG
     Dates: start: 20100316, end: 20100405
  2. SORAFENIB [Suspect]
     Dosage: TOTAL DAILY DOSE: 800 MG
     Dates: start: 20100413, end: 20100426
  3. SORAFENIB [Suspect]
     Dosage: TOTAL DAILY DOSE: 400 MG
     Dates: start: 20100511, end: 20100531
  4. SORAFENIB [Suspect]
     Dosage: TOTAL DAILY DOSE: 400 MG
     Dates: start: 20100622, end: 20100622
  5. SORAFENIB [Suspect]
     Dosage: TOTAL DAILY DOSE: 400 MG
     Dates: start: 20100811, end: 20100830
  6. SORAFENIB [Suspect]
     Dosage: TOTAL DAILY DOSE: 400 MG
     Dates: start: 20100713, end: 20100810
  7. SORAFENIB [Suspect]
     Dosage: TOTAL DAILY DOSE: 400 MG
     Dates: start: 20100701, end: 20100712
  8. SORAFENIB [Suspect]
     Dosage: TOTAL DAILY DOSE: 400 MG
     Dates: start: 20100601, end: 20100621
  9. SORAFENIB [Suspect]
     Dosage: TOTAL DAILY DOSE: 400 MG
     Dates: start: 20100831
  10. ERLOTINIB HYDROCHLORIDE [Suspect]
     Indication: HEPATIC NEOPLASM MALIGNANT
     Dosage: TOTAL DAILY DOSE: 100 MG
     Dates: start: 20100831
  11. ERLOTINIB HYDROCHLORIDE [Suspect]
     Dosage: TOTAL DAILY DOSE: 100 MG
     Dates: start: 20100811, end: 20100830
  12. ERLOTINIB HYDROCHLORIDE [Suspect]
     Dosage: TOTAL DAILY DOSE: 100 MG
     Dates: start: 20100713, end: 20100810
  13. ERLOTINIB HYDROCHLORIDE [Suspect]
     Dosage: TOTAL DAILY DOSE: 100 MG
     Dates: start: 20100701, end: 20100712
  14. ERLOTINIB HYDROCHLORIDE [Suspect]
     Dosage: TOTAL DAILY DOSE: 100 MG
     Dates: start: 20100622, end: 20100622
  15. ERLOTINIB HYDROCHLORIDE [Suspect]
     Dosage: TOTAL DAILY DOSE: 100 MG
     Dates: start: 20100601, end: 20100621
  16. ERLOTINIB HYDROCHLORIDE [Suspect]
     Dosage: TOTAL DAILY DOSE: 100 MG
     Dates: start: 20100511, end: 20100531
  17. ERLOTINIB HYDROCHLORIDE [Suspect]
     Dosage: TOTAL DAILY DOSE: 100 MG
     Dates: start: 20100413, end: 20100426
  18. ERLOTINIB HYDROCHLORIDE [Suspect]
     Dosage: TOTAL DAILY DOSE: 150 MG
     Dates: start: 20100316, end: 20100405
  19. MIXTARD HUMAN 70/30 [Concomitant]
     Indication: DIABETES MELLITUS
     Dates: start: 19960101, end: 20100412
  20. MIXTARD HUMAN 70/30 [Concomitant]
     Dates: start: 20100427, end: 20100622
  21. MIXTARD HUMAN 70/30 [Concomitant]
     Dates: start: 20100413, end: 20100426
  22. MIXTARD HUMAN 70/30 [Concomitant]
     Dates: start: 20100623
  23. LEVOTHYROXINE SODIUM [Concomitant]
     Indication: HYPOTHYROIDISM
     Dates: start: 20050308
  24. SUSTANON [Concomitant]
     Indication: HYPOGONADISM
     Dosage: ONE PATCH
     Dates: start: 20010313
  25. CALCITRIOL [Concomitant]
     Indication: VITAMIN D DEFICIENCY
     Dates: start: 20100101
  26. AVEENO [Concomitant]
     Indication: PALMAR-PLANTAR ERYTHRODYSAESTHESIA SYNDROME
     Dates: start: 20100406

REACTIONS (1)
  - HYPOGLYCAEMIA [None]
